FAERS Safety Report 5764981-6 (Version None)
Quarter: 2008Q2

REPORT INFORMATION
  Report Type: 
  Country: None (occurrence: None)
  Receive Date: 20080611
  Receipt Date: 20080609
  Transmission Date: 20081010
  Serious: Yes (Hospitalization)
  Sender: FDA-Public Use
  Company Number: US-BRISTOL-MYERS SQUIBB COMPANY-14140479

PATIENT
  Age: 61 Year
  Sex: Female
  Weight: 62 kg

DRUGS (10)
  1. PACLITAXEL [Suspect]
     Indication: BREAST CANCER METASTATIC
     Dosage: EVERY WEEK X3 THEN 1 OFF FROM 27NOV2007 AND INTERRUPTED ON 05MAR08.
     Route: 042
     Dates: start: 20080305, end: 20080305
  2. SU-011,248 [Suspect]
     Indication: BREAST CANCER METASTATIC
     Dosage: INTERRUPTED ON 19-MAR-08.
     Route: 048
     Dates: start: 20080319, end: 20080319
  3. ATENOLOL [Concomitant]
     Route: 048
     Dates: start: 20040923
  4. ATORVASTATIN [Concomitant]
     Route: 048
     Dates: start: 20040923
  5. HYZAAR [Concomitant]
     Route: 048
     Dates: start: 20040923
  6. MEGESTROL ACETATE [Concomitant]
     Route: 048
     Dates: start: 20080305
  7. ONDANSETRON HCL [Concomitant]
     Route: 048
     Dates: start: 20071127
  8. COMPAZINE [Concomitant]
     Route: 048
     Dates: start: 20071127
  9. PANTOPRAZOLE [Concomitant]
     Route: 048
     Dates: start: 20080123
  10. LORTAB [Concomitant]
     Route: 048
     Dates: start: 20071001

REACTIONS (3)
  - ARTHRALGIA [None]
  - DEHYDRATION [None]
  - RENAL FAILURE [None]
